FAERS Safety Report 23552925 (Version 1)
Quarter: 2024Q1

REPORT INFORMATION
  Report Type: Spontaneous
  Country: US (occurrence: None)
  Receive Date: 20240221
  Receipt Date: 20240221
  Transmission Date: 20240409
  Serious: Yes (Hospitalization, Other)
  Sender: FDA-Public Use
  Company Number: None

PATIENT
  Age: 38 Year
  Sex: Female

DRUGS (1)
  1. PAZOPANIB [Suspect]
     Active Substance: PAZOPANIB
     Dosage: FREQUENCY : DAILY;?
     Route: 048

REACTIONS (7)
  - Fatigue [None]
  - Nausea [None]
  - Vomiting [None]
  - Glossodynia [None]
  - Pain [None]
  - Pulmonary thrombosis [None]
  - Haemoptysis [None]
